FAERS Safety Report 4878839-8 (Version None)
Quarter: 2006Q1

REPORT INFORMATION
  Report Type: 
  Country: None (occurrence: None)
  Receive Date: 20060112
  Receipt Date: 20060103
  Transmission Date: 20060701
  Serious: Yes (Hospitalization)
  Sender: FDA-Public Use
  Company Number: FR-GLAXOSMITHKLINE-B0405145A

PATIENT
  Age: 36 Year
  Sex: Female
  Weight: 82 kg

DRUGS (9)
  1. KIVEXA [Suspect]
     Indication: HIV INFECTION
     Dosage: 1TAB PER DAY
     Route: 048
     Dates: start: 20051010, end: 20051021
  2. EPIVIR [Suspect]
     Indication: HIV INFECTION
     Dosage: 1TAB PER DAY
     Route: 048
     Dates: start: 20051108
  3. AUGMENTIN '125' [Suspect]
     Dosage: 3G PER DAY
     Route: 048
     Dates: start: 20051201, end: 20051202
  4. COMBIVIR [Suspect]
     Indication: HIV INFECTION
     Route: 048
     Dates: start: 20030101, end: 20031101
  5. IBUPROFEN [Suspect]
     Route: 048
     Dates: start: 20051201, end: 20051202
  6. VIRAMUNE [Suspect]
     Indication: HIV INFECTION
     Dosage: 1UNIT PER DAY
     Route: 048
     Dates: start: 20051108
  7. VIREAD [Suspect]
     Indication: HIV INFECTION
     Dosage: 1UNIT PER DAY
     Route: 048
     Dates: start: 20030101
  8. SUSTIVA [Suspect]
     Indication: HIV INFECTION
     Dosage: 1UNIT PER DAY
     Route: 048
     Dates: start: 20051010, end: 20051021
  9. EFFERALGAN [Concomitant]
     Route: 048
     Dates: start: 20051201, end: 20051202

REACTIONS (8)
  - ABDOMINAL PAIN [None]
  - CHILLS [None]
  - DIARRHOEA [None]
  - EYELID OEDEMA [None]
  - FACE OEDEMA [None]
  - PYREXIA [None]
  - RASH [None]
  - THROMBOCYTOPENIA [None]
